FAERS Safety Report 5680481-6 (Version None)
Quarter: 2008Q1

REPORT INFORMATION
  Report Type: 
  Country: None (occurrence: None)
  Receive Date: 20080326
  Receipt Date: 20080319
  Transmission Date: 20080703
  Serious: Yes (Other)
  Sender: FDA-Public Use
  Company Number: D0056590A

PATIENT
  Sex: Male

DRUGS (1)
  1. VIANI DISKUS [Suspect]
     Route: 065

REACTIONS (1)
  - PSORIASIS [None]
